FAERS Safety Report 22130298 (Version 3)
Quarter: 2023Q2

REPORT INFORMATION
  Report Type: Spontaneous
  Country: RU (occurrence: RU)
  Receive Date: 20230323
  Receipt Date: 20230407
  Transmission Date: 20230722
  Serious: Yes (Other)
  Sender: FDA-Public Use
  Company Number: RU-002147023-NVSC2023RU064572

PATIENT
  Sex: Female

DRUGS (2)
  1. METHOTREXATE [Suspect]
     Active Substance: METHOTREXATE
     Indication: Rosai-Dorfman syndrome
     Dosage: 30 MG/M2, QW (WITH DOSE ADJUSTMENT BASED ON THE LEVEL OF LEUKOCYTES)
     Route: 065
     Dates: start: 201712
  2. MERCAPTOPURINE [Suspect]
     Active Substance: MERCAPTOPURINE
     Indication: Rosai-Dorfman syndrome
     Dosage: STARTING DOSE OF 50 MG/M2, QD
     Route: 065
     Dates: start: 201712

REACTIONS (3)
  - Rosai-Dorfman syndrome [Recovered/Resolved]
  - Malignant neoplasm progression [Recovered/Resolved]
  - Product use in unapproved indication [Unknown]

NARRATIVE: CASE EVENT DATE: 20180601
